FAERS Safety Report 10044197 (Version 2)
Quarter: 2014Q1

REPORT INFORMATION
  Report Type: Spontaneous
  Country: US (occurrence: US)
  Receive Date: 20140328
  Receipt Date: 20140328
  Transmission Date: 20141002
  Serious: Yes (Disabling)
  Sender: FDA-Public Use
  Company Number: US-GE HEALTHCARE MEDICAL DIAGNOSTICS-OSCN-PR-0905S-0272

PATIENT
  Age: 72 Year
  Sex: Female

DRUGS (14)
  1. GADOLINIUM (UNSPECIFIED) [Suspect]
     Indication: PANCREATIC DISORDER
     Route: 042
     Dates: start: 19950512, end: 19950512
  2. GADOLINIUM (UNSPECIFIED) [Suspect]
     Indication: DIABETIC NEPHROPATHY
     Route: 042
     Dates: start: 20011029, end: 20011029
  3. GADOLINIUM (UNSPECIFIED) [Suspect]
     Route: 042
     Dates: start: 20050517, end: 20050517
  4. MAGNEVIST [Suspect]
     Indication: INTESTINAL ISCHAEMIA
     Route: 042
     Dates: start: 20020730, end: 20020730
  5. MAGNEVIST [Suspect]
     Indication: ABDOMINAL PAIN
     Route: 042
     Dates: start: 20020911, end: 20020911
  6. MAGNEVIST [Suspect]
     Indication: RENAL ARTERY STENOSIS
     Route: 042
     Dates: start: 20021011, end: 20021011
  7. MAGNEVIST [Suspect]
     Indication: SARCOIDOSIS
     Route: 042
     Dates: start: 20040113, end: 20040113
  8. MAGNEVIST [Suspect]
     Indication: PERIPHERAL ARTERY STENOSIS
     Route: 042
     Dates: start: 20040116, end: 20040116
  9. MAGNEVIST [Suspect]
     Indication: CAROTID BRUIT
     Route: 042
     Dates: start: 20050517, end: 20050517
  10. MAGNEVIST [Suspect]
     Route: 042
     Dates: start: 20060822, end: 20060822
  11. MULTIHANCE [Suspect]
     Indication: PRODUCT USED FOR UNKNOWN INDICATION
     Route: 042
     Dates: start: 20061219, end: 20061219
  12. EPOGEN [Concomitant]
  13. PROCRIT [Concomitant]
     Dates: start: 2001
  14. ARANESP [Concomitant]

REACTIONS (1)
  - Nephrogenic systemic fibrosis [Not Recovered/Not Resolved]
